FAERS Safety Report 6032651-5 (Version None)
Quarter: 2009Q1

REPORT INFORMATION
  Report Type: 
  Country: None (occurrence: None)
  Receive Date: 20090109
  Receipt Date: 20081230
  Transmission Date: 20090719
  Serious: Yes (Other)
  Sender: FDA-Public Use
  Company Number: US-AMGEN-US326305

PATIENT
  Sex: Male

DRUGS (16)
  1. NPLATE [Suspect]
     Indication: IDIOPATHIC THROMBOCYTOPENIC PURPURA
     Dates: start: 20080922
  2. FLAGYL [Concomitant]
  3. LEVAQUIN [Concomitant]
  4. SYNTHROID [Concomitant]
  5. POTASSIUM CHLORIDE [Concomitant]
  6. CALCIUM WITH VITAMIN D [Concomitant]
  7. FLOMAX [Concomitant]
  8. LASIX [Concomitant]
  9. VITAMIN B6 [Concomitant]
  10. VITAMIN B-12 [Concomitant]
  11. NEXIUM [Concomitant]
  12. FOLIC ACID [Concomitant]
  13. REGLAN [Concomitant]
  14. PRO-AIR (PARKE DAVIS) [Concomitant]
  15. PRAVACHOL [Concomitant]
  16. SPIRIVA [Concomitant]

REACTIONS (1)
  - CONVULSION [None]
